FAERS Safety Report 17696595 (Version 1)
Quarter: 2020Q2

REPORT INFORMATION
  Report Type: Spontaneous
  Country: US (occurrence: US)
  Receive Date: 20200423
  Receipt Date: 20200423
  Transmission Date: 20200714
  Serious: No
  Sender: FDA-Public Use
  Company Number: US-PURDUE-USA-2019-0148808

PATIENT
  Sex: Female

DRUGS (2)
  1. OXYCODONE HYDROCHLORIDE. [Suspect]
     Active Substance: OXYCODONE HYDROCHLORIDE
     Indication: PAIN
     Dosage: 2X30 MG, BID
     Route: 048
     Dates: start: 2007, end: 2018
  2. METHADONE [Concomitant]
     Active Substance: METHADONE HYDROCHLORIDE
     Indication: PAIN
     Route: 048

REACTIONS (3)
  - Bipolar disorder [Unknown]
  - Generalised anxiety disorder [Unknown]
  - Depression [Unknown]

NARRATIVE: CASE EVENT DATE: 2018
